FAERS Safety Report 9173938 (Version 1)
Quarter: 2013Q1

REPORT INFORMATION
  Report Type: Spontaneous
  Country: US (occurrence: US)
  Receive Date: 20130320
  Receipt Date: 20130320
  Transmission Date: 20140127
  Serious: Yes (Death)
  Sender: FDA-Public Use
  Company Number: US-TEVA-375237USA

PATIENT
  Sex: 0

DRUGS (1)
  1. ETOPOSIDE [Suspect]

REACTIONS (3)
  - Death [Fatal]
  - Leukopenia [Unknown]
  - Candida infection [Unknown]
